FAERS Safety Report 7994989-1 (Version None)
Quarter: 2011Q4

REPORT INFORMATION
  Report Type: 
  Country: None (occurrence: None)
  Receive Date: 20111220
  Receipt Date: 20111216
  Transmission Date: 20120403
  Serious: Yes (Other)
  Sender: FDA-Public Use
  Company Number: CA-BAYER-2011-121172

PATIENT
  Age: 29 Year
  Sex: Male

DRUGS (1)
  1. LEVITRA [Suspect]
     Dosage: UNK, ONCE
     Route: 065

REACTIONS (3)
  - PENILE PAIN [None]
  - PENILE VASCULAR DISORDER [None]
  - TESTICULAR DISORDER [None]
